FAERS Safety Report 4509337-9 (Version None)
Quarter: 2004Q4

REPORT INFORMATION
  Report Type: 
  Country: None (occurrence: None)
  Receive Date: 20041123
  Receipt Date: 20041118
  Transmission Date: 20050328
  Serious: Yes (Life-Threatening, Hospitalization, Disabling, Other)
  Sender: FDA-Public Use
  Company Number: US-MERCK-0411USA03205

PATIENT
  Age: 86 Year
  Sex: Female

DRUGS (4)
  1. VIOXX [Suspect]
     Indication: BACK PAIN
     Route: 048
     Dates: end: 20040101
  2. TOPROL-XL [Concomitant]
     Route: 065
  3. COUMADIN [Concomitant]
     Route: 065
  4. LASIX [Concomitant]
     Route: 065

REACTIONS (3)
  - BACK DISORDER [None]
  - CHOLELITHIASIS [None]
  - PANCREATIC HAEMORRHAGE [None]
